FAERS Safety Report 16472496 (Version 2)
Quarter: 2019Q3

REPORT INFORMATION
  Report Type: Spontaneous
  Country: US (occurrence: US)
  Receive Date: 20190625
  Receipt Date: 20190717
  Transmission Date: 20191004
  Serious: Yes (Hospitalization, Other)
  Sender: FDA-Public Use
  Company Number: US-BAYER-2019-103981

PATIENT
  Age: 28 Year
  Sex: Female

DRUGS (2)
  1. PARACETAMOL [Suspect]
     Active Substance: ACETAMINOPHEN
     Indication: SUICIDE ATTEMPT
     Dosage: 50 G, ONCE IN 1 HOUR; ADDITIONAL INFO: OVERDOSE, MISUSE;
     Route: 048
  2. ACETYLSALICYLIC ACID (PAIN AND FEVER) [Suspect]
     Active Substance: ASPIRIN
     Indication: SUICIDE ATTEMPT
     Dosage: 5 G, ONCE IN 1 HOUR
     Route: 048

REACTIONS (10)
  - Metabolic acidosis [Recovered/Resolved]
  - Toxicity to various agents [None]
  - Maternal exposure during pregnancy [None]
  - Intentional overdose [None]
  - Premature delivery [None]
  - Hypoacusis [Unknown]
  - Drug abuse [None]
  - Caesarean section [None]
  - Respiratory alkalosis [Recovered/Resolved]
  - Contraindicated product administered [None]
